FAERS Safety Report 8897974 (Version 3)
Quarter: 2013Q3

REPORT INFORMATION
  Report Type: Spontaneous
  Country: US (occurrence: US)
  Receive Date: 20121109
  Receipt Date: 20130725
  Transmission Date: 20140515
  Serious: Yes (Hospitalization, Other)
  Sender: FDA-Public Use
  Company Number: US-MERCK-1210USA012906

PATIENT
  Age: 35 Year
  Sex: Female
  Weight: 81.18 kg

DRUGS (3)
  1. JANUVIA [Suspect]
     Indication: TYPE 2 DIABETES MELLITUS
     Dosage: 100 MG, QD
     Route: 048
     Dates: start: 2010
  2. ZOCOR [Concomitant]
     Dosage: 20 MG, UNK
  3. GLUCOTROL [Concomitant]
     Dosage: 10 MG, UNK

REACTIONS (1)
  - Convulsion [Recovered/Resolved]
